FAERS Safety Report 24405150 (Version 1)
Quarter: 2024Q4

REPORT INFORMATION
  Report Type: Spontaneous
  Country: BR (occurrence: BR)
  Receive Date: 20241007
  Receipt Date: 20241007
  Transmission Date: 20250114
  Serious: Yes (Hospitalization)
  Sender: BAYER
  Company Number: BR-BAYER-2024A140525

PATIENT
  Age: 39 Year
  Sex: Female

DRUGS (2)
  1. GADOBUTROL [Suspect]
     Active Substance: GADOBUTROL
     Indication: Magnetic resonance imaging abdominal
     Dosage: 15 ML, ONCE
     Dates: start: 20240925, end: 20240925
  2. GADOBUTROL [Suspect]
     Active Substance: GADOBUTROL
     Indication: Magnetic resonance imaging pelvic

REACTIONS (4)
  - Eye swelling [Not Recovered/Not Resolved]
  - Throat irritation [Not Recovered/Not Resolved]
  - Malaise [Not Recovered/Not Resolved]
  - Oxygen saturation decreased [Not Recovered/Not Resolved]

NARRATIVE: CASE EVENT DATE: 20240925
